FAERS Safety Report 9404701 (Version 2)
Quarter: 2013Q3

REPORT INFORMATION
  Report Type: Spontaneous
  Country: DK (occurrence: DK)
  Receive Date: 20130717
  Receipt Date: 20130802
  Transmission Date: 20140515
  Serious: Yes (Disabling, Congenital Anomaly)
  Sender: FDA-Public Use
  Company Number: DK-FRI-1000046759

PATIENT
  Sex: Male
  Weight: 13 kg

DRUGS (3)
  1. ESCITALOPRAM [Suspect]
     Indication: DEPRESSION
     Dosage: 20 MG
     Route: 064
     Dates: start: 201001
  2. CITALOPRAM [Suspect]
     Indication: DEPRESSION
     Dosage: 40 MG
     Route: 064
     Dates: start: 2010
  3. NORITREN [Suspect]
     Indication: DEPRESSION
     Dosage: 60 MG
     Route: 064
     Dates: start: 2010

REACTIONS (2)
  - Psychomotor retardation [Unknown]
  - Foetal exposure during pregnancy [Recovered/Resolved]
